FAERS Safety Report 17534293 (Version 3)
Quarter: 2020Q3

REPORT INFORMATION
  Report Type: Report from Study
  Country: AR (occurrence: AR)
  Receive Date: 20200312
  Receipt Date: 20200709
  Transmission Date: 20201102
  Serious: Yes (Hospitalization, Other)
  Sender: FDA-Public Use
  Company Number: AR-AMGEN-ARGSL2019184565

PATIENT
  Age: 60 Year
  Sex: Male

DRUGS (1)
  1. KYPROLIS [Suspect]
     Active Substance: CARFILZOMIB
     Indication: PLASMA CELL MYELOMA
     Dosage: UNK, EVERY 15 DAYS
     Route: 065
     Dates: start: 201910, end: 2020

REACTIONS (7)
  - Off label use [Unknown]
  - Calcium deficiency [Unknown]
  - Asthenia [Unknown]
  - Abdominal discomfort [Unknown]
  - Hypokalaemia [Unknown]
  - Transplant [Unknown]
  - Pain [Unknown]

NARRATIVE: CASE EVENT DATE: 201910
